FAERS Safety Report 20479375 (Version 1)
Quarter: 2022Q1

REPORT INFORMATION
  Report Type: Spontaneous
  Country: JP (occurrence: JP)
  Receive Date: 20220216
  Receipt Date: 20220216
  Transmission Date: 20220423
  Serious: No
  Sender: FDA-Public Use
  Company Number: JP-GSKNCCC-Case-01418363_AE-54686

PATIENT
  Age: 74 Year
  Sex: Male

DRUGS (1)
  1. SOTROVIMAB [Suspect]
     Active Substance: SOTROVIMAB
     Dosage: UNK
     Dates: start: 20220208

REACTIONS (2)
  - Infusion site extravasation [Unknown]
  - Pain [Unknown]

NARRATIVE: CASE EVENT DATE: 20220208
